FAERS Safety Report 23944001 (Version 4)
Quarter: 2024Q3

REPORT INFORMATION
  Report Type: Report from Study
  Country: EG (occurrence: EG)
  Receive Date: 20240606
  Receipt Date: 20240827
  Transmission Date: 20241017
  Serious: Yes (Other)
  Sender: SANDOZ
  Company Number: EG-002147023-NVSC2022EG281033

PATIENT
  Age: 11 Year
  Sex: Male

DRUGS (10)
  1. OMNITROPE [Suspect]
     Active Substance: SOMATROPIN
     Dosage: 1.8 MG, QD (5 MG/1.5 ML) (STARTED 06 TO 07 MONTHS AGO)
     Route: 058
  2. OMNITROPE [Suspect]
     Active Substance: SOMATROPIN
     Indication: Growth hormone deficiency
     Dosage: 0.9 MG, QD (10 MG/1.5 ML) (STOPPED 06 TO 07 MONTHS AGO)
     Route: 058
     Dates: start: 20201201
  3. OMNITROPE [Suspect]
     Active Substance: SOMATROPIN
     Dosage: 1.8 MG, QD
     Route: 058
     Dates: start: 202012
  4. Ferroglobin [Concomitant]
     Indication: Anaemia
     Dosage: ONE CAPSULE PER DAY
     Route: 048
     Dates: start: 202312
  5. FOLIC ACID [Concomitant]
     Active Substance: FOLIC ACID
     Indication: Anaemia
     Dosage: ONE TABLET PER DAY
     Route: 048
     Dates: start: 202312
  6. PENTASA [Concomitant]
     Active Substance: MESALAMINE
     Indication: Hypersensitivity
     Dosage: 3 DOSAGE FORM, QD (STARTED 6 OR 7 MONTHS AGO)
     Route: 048
  7. PENTASA [Concomitant]
     Active Substance: MESALAMINE
     Indication: Functional gastrointestinal disorder
     Dosage: ONE TABLET 3 TIMES DAILY
     Route: 048
     Dates: start: 202106
  8. PENTASA [Concomitant]
     Active Substance: MESALAMINE
     Indication: Colitis
  9. VITAMIN D [Concomitant]
     Active Substance: VITAMIN D NOS
     Indication: Vitamin supplementation
     Dosage: ( STARTED BY 0.5 DROPPER THEN TAKEN AS 1 DROPPER, THEN CHANGED TO ANOTHER IMPORTED DRUG TAKEN AS ONE
     Route: 048
  10. VITAMIN D [Concomitant]
     Active Substance: VITAMIN D NOS
     Dosage: HALF DROPPER PER DAY (PATIENT SOMETIMES MISSED DOSES)
     Route: 048
     Dates: start: 2021

REACTIONS (17)
  - Weight decreased [Recovered/Resolved]
  - Abdominal discomfort [Recovered/Resolved]
  - Abdominal pain [Recovered/Resolved]
  - Diarrhoea [Recovered/Resolved]
  - Nocturia [Not Recovered/Not Resolved]
  - Urinary incontinence [Recovered/Resolved]
  - Somnolence [Recovered/Resolved]
  - Blood iron decreased [Unknown]
  - Haemoglobin decreased [Unknown]
  - Urinary incontinence [Unknown]
  - Therapy cessation [Unknown]
  - Therapy change [Unknown]
  - Expired device used [Unknown]
  - Wrong technique in device usage process [Unknown]
  - Poor quality device used [Unknown]
  - Product availability issue [Unknown]
  - Expired product administered [Unknown]

NARRATIVE: CASE EVENT DATE: 20201201
